FAERS Safety Report 4388271-1 (Version None)
Quarter: 2004Q3

REPORT INFORMATION
  Report Type: 
  Country: None (occurrence: None)
  Receive Date: 20040701
  Receipt Date: 20040623
  Transmission Date: 20050211
  Serious: Yes (Other)
  Sender: FDA-Public Use
  Company Number: 200416379GDDC

PATIENT
  Age: 65 Year
  Sex: Female
  Weight: 64 kg

DRUGS (9)
  1. ARAVA [Suspect]
     Indication: RHEUMATOID ARTHRITIS
     Route: 048
     Dates: start: 20030501
  2. METHOTREXATE [Concomitant]
     Dosage: DOSE: 15 MG WEEKLY
     Route: 048
  3. FOLIC ACID [Concomitant]
     Route: 048
  4. PREDNISOLONE [Concomitant]
     Route: 048
  5. ALENDRONATE SODIUM [Concomitant]
     Dosage: DOSE: 70 MG WEEKLY
     Route: 048
  6. ATENOLOL [Concomitant]
     Dosage: DOSE: UNK
  7. LOSARTAN POTASSIUM [Concomitant]
     Dosage: DOSE: UNK
  8. INDORAMIN [Concomitant]
     Dosage: DOSE: UNK
  9. NIFEDIPINE [Concomitant]
     Dosage: DOSE: UNK

REACTIONS (2)
  - HYPERTONIC BLADDER [None]
  - URINARY INCONTINENCE [None]
